FAERS Safety Report 7946982-2 (Version None)
Quarter: 2011Q4

REPORT INFORMATION
  Report Type: 
  Country: None (occurrence: None)
  Receive Date: 20111129
  Receipt Date: 20111117
  Transmission Date: 20120403
  Serious: Yes (Hospitalization, Other)
  Sender: FDA-Public Use
  Company Number: US-ELI_LILLY_AND_COMPANY-US201110005746

PATIENT
  Sex: Female

DRUGS (3)
  1. CALCIUM [Concomitant]
  2. FORTEO [Suspect]
     Indication: OSTEOPOROSIS
     Dosage: 20 UG, QD
     Dates: start: 20110801
  3. VITAMIN TAB [Concomitant]

REACTIONS (4)
  - SPINAL COMPRESSION FRACTURE [None]
  - TRANSFUSION [None]
  - ABDOMINAL PAIN [None]
  - CHOLECYSTECTOMY [None]
